FAERS Safety Report 7396417-6 (Version None)
Quarter: 2011Q2

REPORT INFORMATION
  Report Type: 
  Country: None (occurrence: None)
  Receive Date: 20110406
  Receipt Date: 20110325
  Transmission Date: 20111010
  Serious: Yes (Death)
  Sender: FDA-Public Use
  Company Number: US-CELGENEUS-163-21880-11030420

PATIENT
  Sex: Female

DRUGS (11)
  1. GLIPIZIDE [Concomitant]
     Route: 065
  2. REVLIMID [Suspect]
     Indication: MULTIPLE MYELOMA
     Dosage: 25 MILLIGRAM
     Route: 048
     Dates: start: 20100201
  3. DEXAMETHASONE [Concomitant]
     Route: 065
  4. LISINOPRIL [Concomitant]
     Route: 065
  5. WARFARIN SODIUM [Concomitant]
     Route: 065
  6. AMRIX [Concomitant]
     Route: 065
  7. POTASSIUM [Concomitant]
     Route: 065
  8. ATENOLOL [Concomitant]
     Route: 065
  9. PRAMIPEXOLE DIHYDROCHLORIDE [Concomitant]
     Route: 065
  10. VELCADE [Concomitant]
     Route: 065
  11. NEXIUM [Concomitant]
     Route: 065

REACTIONS (2)
  - NEOPLASM MALIGNANT [None]
  - MULTIPLE MYELOMA [None]
